FAERS Safety Report 5223658-6 (Version None)
Quarter: 2007Q1

REPORT INFORMATION
  Report Type: 
  Country: None (occurrence: None)
  Receive Date: 20070130
  Receipt Date: 20070123
  Transmission Date: 20070707
  Serious: Yes (Other)
  Sender: FDA-Public Use
  Company Number: DE-SANOFI-SYNTHELABO-A04200700129

PATIENT
  Sex: Female
  Weight: 52 kg

DRUGS (1)
  1. OXALIPLATIN [Suspect]
     Indication: COLON CANCER
     Route: 041

REACTIONS (3)
  - EYELID PTOSIS [None]
  - FACE OEDEMA [None]
  - MONOPARESIS [None]
